FAERS Safety Report 8287892-3 (Version None)
Quarter: 2012Q2

REPORT INFORMATION
  Report Type: 
  Country: None (occurrence: None)
  Receive Date: 20120416
  Receipt Date: 20120411
  Transmission Date: 20120825
  Serious: Yes (Other)
  Sender: FDA-Public Use
  Company Number: US-BAYER-2012-036020

PATIENT
  Age: 29 Year
  Sex: Female

DRUGS (2)
  1. MAGNEVIST [Suspect]
     Indication: CONVULSION
  2. MAGNEVIST [Suspect]
     Indication: NUCLEAR MAGNETIC RESONANCE IMAGING
     Dosage: 15 ML, ONCE
     Dates: start: 20120411, end: 20120411

REACTIONS (5)
  - DIZZINESS [None]
  - DYSPHAGIA [None]
  - PRURITUS [None]
  - FLUSHING [None]
  - DYSPNOEA [None]
